FAERS Safety Report 20713357 (Version 1)
Quarter: 2022Q2

REPORT INFORMATION
  Report Type: Spontaneous
  Country: US (occurrence: None)
  Receive Date: 20220414
  Receipt Date: 20220414
  Transmission Date: 20220721
  Serious: Yes (Hospitalization)
  Sender: FDA-Public Use
  Company Number: None

PATIENT
  Sex: Female

DRUGS (1)
  1. COPAXONE [Suspect]
     Active Substance: GLATIRAMER ACETATE
     Indication: Multiple sclerosis
     Dosage: FREQUENCY : 3 TIMES A WEEK;?
     Route: 058
     Dates: start: 20210623

REACTIONS (7)
  - Injection site erythema [None]
  - Injection site haemorrhage [None]
  - Swelling face [None]
  - Dyspnoea [None]
  - Blindness [None]
  - Palpitations [None]
  - Adverse drug reaction [None]
